FAERS Safety Report 6084141-1 (Version None)
Quarter: 2009Q1

REPORT INFORMATION
  Report Type: 
  Country: None (occurrence: None)
  Receive Date: 20090217
  Receipt Date: 20090204
  Transmission Date: 20090719
  Serious: Yes (Other)
  Sender: FDA-Public Use
  Company Number: 2009-00067

PATIENT
  Age: 69 Year
  Sex: Female
  Weight: 57 kg

DRUGS (9)
  1. VELCADE [Suspect]
     Indication: MULTIPLE MYELOMA
     Dosage: 2 MG, INTRAVENOUS
     Route: 042
     Dates: start: 20080728, end: 20081001
  2. DEXAMETHASONE [Concomitant]
  3. ZOPICLONE (ZOPICLONE) [Concomitant]
  4. LANSOPRAZOLE [Concomitant]
  5. DOSULEPIN (DOSULEPIN) [Concomitant]
  6. GABAPENTIN [Concomitant]
  7. FENTANYL-100 [Concomitant]
  8. OXYCODONE HCL [Concomitant]
  9. SODIUM CLODRONATE [Concomitant]

REACTIONS (1)
  - DRUG INEFFECTIVE [None]
